FAERS Safety Report 8571165-5 (Version None)
Quarter: 2012Q3

REPORT INFORMATION
  Report Type: 
  Country: None (occurrence: None)
  Receive Date: 20120806
  Receipt Date: 20120730
  Transmission Date: 20120928
  Serious: No
  Sender: FDA-Public Use
  Company Number: US-PFIZER INC-2012144123

PATIENT
  Age: 47 Year
  Sex: Male
  Weight: 74.83 kg

DRUGS (7)
  1. CARVEDILOL [Concomitant]
     Indication: HYPERTENSION
     Dosage: 6.25 MG, 2X/DAY
  2. VITAMIN D [Concomitant]
     Indication: VITAMIN D DEFICIENCY
     Dosage: 2000 IU, DAILY
  3. ACETYLSALICYLIC ACID [Concomitant]
     Indication: CARDIAC DISORDER
     Dosage: 81 MG, DAILY
  4. LYRICA [Suspect]
     Indication: NEUROPATHY PERIPHERAL
     Dosage: 75 MG, DAILY
     Route: 048
     Dates: start: 20120610
  5. LYRICA [Suspect]
     Dosage: 50 MG, UNK
  6. PRILOSEC [Concomitant]
     Indication: GASTROOESOPHAGEAL REFLUX DISEASE
     Dosage: 20.6 MG, DAILY
  7. LISINOPRIL [Concomitant]
     Indication: HYPERTENSION
     Dosage: 20 MG, DAILY

REACTIONS (6)
  - HALLUCINATION, AUDITORY [None]
  - HALLUCINATION, VISUAL [None]
  - FATIGUE [None]
  - INSOMNIA [None]
  - DARK CIRCLES UNDER EYES [None]
  - DRY MOUTH [None]
